FAERS Safety Report 11671606 (Version 2)
Quarter: 2017Q3

REPORT INFORMATION
  Report Type: Report from Study
  Country: US (occurrence: US)
  Receive Date: 20151028
  Receipt Date: 20170728
  Transmission Date: 20171127
  Serious: Yes (Other)
  Sender: FDA-Public Use
  Company Number: PHEH2014US008679

PATIENT
  Sex: Female

DRUGS (2)
  1. FEMARA [Suspect]
     Active Substance: LETROZOLE
     Indication: BREAST CANCER
     Dosage: 2.5 MG, QD
     Route: 048
  2. FEMARA [Suspect]
     Active Substance: LETROZOLE
     Dosage: 2.5 MG, QD
     Route: 048

REACTIONS (7)
  - Blood count abnormal [Unknown]
  - Memory impairment [Unknown]
  - Blood pressure increased [Unknown]
  - Cardiac valve disease [Unknown]
  - Anaemia [Unknown]
  - Fatigue [Unknown]
  - Malaise [Unknown]
